FAERS Safety Report 6264430-8 (Version None)
Quarter: 2009Q3

REPORT INFORMATION
  Report Type: 
  Country: None (occurrence: None)
  Receive Date: 20090710
  Receipt Date: 20090703
  Transmission Date: 20100115
  Serious: Yes (Hospitalization)
  Sender: FDA-Public Use
  Company Number: D0062137A

PATIENT
  Sex: Male
  Weight: 68 kg

DRUGS (8)
  1. SEROXAT [Suspect]
     Indication: DEPRESSIVE SYMPTOM
     Dosage: 40MG PER DAY
     Route: 048
     Dates: start: 20081201
  2. HALDOL [Suspect]
     Dosage: 5MG PER DAY
     Route: 048
     Dates: start: 20081201, end: 20090201
  3. DOMINAL [Suspect]
     Dosage: 80MG PER DAY
     Route: 048
     Dates: start: 20081201, end: 20090201
  4. SEROQUEL [Suspect]
     Dosage: 200MG PER DAY
     Route: 048
     Dates: start: 20081201
  5. AKINETON [Suspect]
     Dosage: 2MG PER DAY
     Route: 048
     Dates: start: 20081201, end: 20090217
  6. TAVOR [Concomitant]
     Dosage: 4MG PER DAY
     Route: 048
     Dates: start: 20081201
  7. BISOPROLOL FUMARATE [Concomitant]
     Dosage: 2.5MG PER DAY
     Route: 048
  8. SIMVASTATIN [Concomitant]
     Dosage: 20MG PER DAY
     Route: 048

REACTIONS (7)
  - AGITATION [None]
  - CONFUSIONAL STATE [None]
  - DELIRIUM [None]
  - DISORIENTATION [None]
  - DRUG INEFFECTIVE [None]
  - DRUG INTERACTION [None]
  - MEMORY IMPAIRMENT [None]
